FAERS Safety Report 7055287-6 (Version None)
Quarter: 2010Q4

REPORT INFORMATION
  Report Type: 
  Country: None (occurrence: None)
  Receive Date: 20101021
  Receipt Date: 20101012
  Transmission Date: 20110411
  Serious: Yes (Other)
  Sender: FDA-Public Use
  Company Number: CA-JNJFOC-20101003970

PATIENT
  Sex: Female
  Weight: 84.2 kg

DRUGS (11)
  1. REMICADE [Suspect]
     Indication: RHEUMATOID ARTHRITIS
     Route: 042
  2. METHOTREXATE [Concomitant]
  3. CELEBREX [Concomitant]
  4. PREMARIN [Concomitant]
  5. DIAMICRON [Concomitant]
  6. ADALAT [Concomitant]
  7. PARIET [Concomitant]
  8. ACTONEL [Concomitant]
  9. CYTOMEL [Concomitant]
  10. ASPIRIN [Concomitant]
  11. METFORMIN [Concomitant]

REACTIONS (1)
  - SKIN IRRITATION [None]
